FAERS Safety Report 9718268 (Version 1)
Quarter: 2013Q4

REPORT INFORMATION
  Report Type: Spontaneous
  Country: US (occurrence: US)
  Receive Date: 20131125
  Receipt Date: 20131125
  Transmission Date: 20140711
  Serious: No
  Sender: FDA-Public Use
  Company Number: US-VIVUS-2013V1000135

PATIENT
  Age: 61 Year
  Sex: Female
  Weight: 81.72 kg

DRUGS (14)
  1. QSYMIA 3.75MG/23MG [Suspect]
     Indication: WEIGHT DECREASED
     Dosage: DAILY DOSE: 1 CAPSULE,
     Route: 048
     Dates: start: 201302, end: 201302
  2. SYNTHROID [Concomitant]
     Indication: HYPERTHYROIDISM
     Route: 048
     Dates: start: 2009
  3. COREG [Concomitant]
     Indication: HYPERTENSION
     Route: 048
     Dates: start: 2010
  4. WELLBUTRIN [Concomitant]
     Indication: DEPRESSION
     Route: 048
  5. CELEXA [Concomitant]
     Indication: DEPRESSION
     Route: 048
     Dates: start: 2012
  6. CELEXA [Concomitant]
     Indication: ANXIETY
  7. ALLEGRA [Concomitant]
     Indication: SEASONAL ALLERGY
     Route: 048
  8. VESICARE [Concomitant]
     Indication: STRESS URINARY INCONTINENCE
     Route: 048
     Dates: start: 20130215
  9. OXYCODONE [Concomitant]
     Indication: BACK PAIN
     Route: 048
  10. OXYCODONE [Concomitant]
     Indication: ARTHRALGIA
  11. MULTIVITAMIN [Concomitant]
     Indication: MEDICAL DIET
     Route: 048
  12. FISH OIL [Concomitant]
     Indication: MEDICAL DIET
     Route: 048
  13. CITRACAL [Concomitant]
     Indication: MEDICAL DIET
     Route: 048
  14. VITAMIN D3 [Concomitant]
     Indication: MEDICAL DIET
     Route: 048

REACTIONS (4)
  - Swelling face [Recovered/Resolved]
  - Local swelling [Recovered/Resolved]
  - Swelling [Recovered/Resolved]
  - Erythema [Recovered/Resolved]
